FAERS Safety Report 8181947-X (Version None)
Quarter: 2012Q1

REPORT INFORMATION
  Report Type: 
  Country: None (occurrence: None)
  Receive Date: 20120302
  Receipt Date: 20120227
  Transmission Date: 20120608
  Serious: Yes (Hospitalization)
  Sender: FDA-Public Use
  Company Number: FR-TEVA-325097USA

PATIENT
  Sex: Female

DRUGS (2)
  1. RITUXIMAB [Suspect]
  2. TREANDA [Suspect]
     Route: 042

REACTIONS (1)
  - FEBRILE BONE MARROW APLASIA [None]
